FAERS Safety Report 7476220-9 (Version None)
Quarter: 2011Q2

REPORT INFORMATION
  Report Type: 
  Country: None (occurrence: None)
  Receive Date: 20110512
  Receipt Date: 20110505
  Transmission Date: 20111010
  Serious: Yes (Death, Hospitalization)
  Sender: FDA-Public Use
  Company Number: AU-BAYER-2011-038100

PATIENT
  Age: 59 Year
  Sex: Male

DRUGS (5)
  1. NEXAVAR [Suspect]
     Indication: HEPATIC NEOPLASM MALIGNANT
     Dosage: UNK
     Dates: start: 20100824, end: 20100917
  2. OXYCODONE HYDROCHLORIDE [Concomitant]
     Indication: PAIN
     Dosage: 5 MG, PRN
     Dates: start: 20100909
  3. OXYCONTIN [Concomitant]
     Indication: PAIN
     Dosage: 10 MG, BID
     Dates: start: 20100909
  4. NEXAVAR [Suspect]
     Dosage: 400 MG, BID
     Dates: start: 20100920, end: 20101005
  5. SPIRONOLACTONE [Concomitant]
     Indication: ASCITES
     Dosage: 100 MG, UNK
     Dates: start: 20090415

REACTIONS (10)
  - DEATH [None]
  - ERYTHEMA [None]
  - ENCEPHALOPATHY [None]
  - ASCITES [None]
  - SKIN EXFOLIATION [None]
  - GENITAL RASH [None]
  - DERMATITIS INFECTED [None]
  - DERMATITIS [None]
  - DRY SKIN [None]
  - PAIN IN EXTREMITY [None]
